FAERS Safety Report 10197117 (Version 2)
Quarter: 2015Q4

REPORT INFORMATION
  Report Type: Report from Study
  Country: DE (occurrence: DE)
  Receive Date: 20140527
  Receipt Date: 20151014
  Transmission Date: 20160304
  Serious: No
  Sender: FDA-Public Use
  Company Number: DE-UCBSA-122157

PATIENT
  Age: 27 Year
  Sex: Female
  Weight: 67 kg

DRUGS (5)
  1. PARACETAMOL [Concomitant]
     Active Substance: ACETAMINOPHEN
     Indication: HEADACHE
     Dosage: 500 MG, MONTHLY (QM)
     Route: 048
     Dates: start: 200806
  2. MAXIM [Concomitant]
     Active Substance: DIENOGEST\ETHINYL ESTRADIOL
     Indication: CONTRACEPTION
     Dosage: 01030 MG, 2 MG
     Route: 048
     Dates: start: 200008
  3. NOVOTHYRAL [Concomitant]
     Active Substance: LEVOTHYROXINE SODIUM\LIOTHYRONINE SODIUM
     Indication: HYPOTHYROIDISM
     Route: 048
     Dates: start: 198708
  4. CONTRACEP LACTO [Concomitant]
     Dosage: UNK UNK, AS NEEDED (PRN)
     Route: 067
     Dates: start: 20140130
  5. *CARBAMAZEPINE [Suspect]
     Active Substance: CARBAMAZEPINE
     Indication: EPILEPSY
     Route: 048

REACTIONS (1)
  - Sinus bradycardia [Not Recovered/Not Resolved]

NARRATIVE: CASE EVENT DATE: 20140509
